FAERS Safety Report 12839522 (Version 1)
Quarter: 2016Q4

REPORT INFORMATION
  Report Type: Spontaneous
  Country: US (occurrence: US)
  Receive Date: 20161012
  Receipt Date: 20161012
  Transmission Date: 20170207
  Serious: No
  Sender: FDA-Public Use
  Company Number: US-GLAXOSMITHKLINE-US2016GSK148848

PATIENT
  Age: 41 Year
  Sex: Male

DRUGS (1)
  1. TANZEUM [Suspect]
     Active Substance: ALBIGLUTIDE
     Indication: TYPE 2 DIABETES MELLITUS
     Dosage: 50 MG, WE
     Dates: start: 201602

REACTIONS (3)
  - Device use error [Unknown]
  - Device leakage [Unknown]
  - Intentional underdose [Unknown]

NARRATIVE: CASE EVENT DATE: 20161009
